FAERS Safety Report 17633864 (Version 3)
Quarter: 2020Q3

REPORT INFORMATION
  Report Type: Spontaneous
  Country: TR (occurrence: TR)
  Receive Date: 20200406
  Receipt Date: 20200910
  Transmission Date: 20201102
  Serious: Yes (Hospitalization, Other)
  Sender: FDA-Public Use
  Company Number: TR-BAYER-2020-055846

PATIENT
  Age: 30 Year
  Sex: Female
  Weight: 53 kg

DRUGS (2)
  1. GLUCOBAY [Suspect]
     Active Substance: ACARBOSE
     Indication: POSTPRANDIAL HYPOGLYCAEMIA
     Dosage: 100 MG, TID
     Dates: start: 2014
  2. GLUCOBAY [Suspect]
     Active Substance: ACARBOSE
     Indication: POSTPRANDIAL HYPOGLYCAEMIA
     Dosage: 100 MG, TID
     Dates: start: 20200329

REACTIONS (6)
  - Product use in unapproved indication [None]
  - Product packaging issue [None]
  - Drug ineffective [None]
  - Angina pectoris [Recovered/Resolved]
  - Off label use [None]
  - Blood pressure decreased [Recovered/Resolved]

NARRATIVE: CASE EVENT DATE: 20200319
